FAERS Safety Report 9804962 (Version 1)
Quarter: 2014Q1

REPORT INFORMATION
  Report Type: Report from Study
  Country: US (occurrence: US)
  Receive Date: 20140109
  Receipt Date: 20140109
  Transmission Date: 20141002
  Serious: Yes (Death)
  Sender: FDA-Public Use
  Company Number: US-ROCHE-1330659

PATIENT
  Sex: Female

DRUGS (10)
  1. AVASTIN [Suspect]
     Indication: RECTAL CANCER
     Dosage: 09/AUG/2011
     Route: 041
     Dates: start: 20110712
  2. AVASTIN [Suspect]
     Dosage: 27/SEP/2011, 11/OCT/2011, 25/OCT/2011
     Route: 041
  3. METOCLOPRAMID [Concomitant]
     Dosage: 23/AUG/2011
     Route: 041
  4. HYDROCORTISONE [Concomitant]
     Dosage: 11/OCT/2011
     Route: 041
  5. ERBITUX [Concomitant]
     Indication: COLON CANCER
     Route: 041
     Dates: start: 20110712
  6. ERBITUX [Concomitant]
     Dosage: 26/JUL/2011
     Route: 041
  7. ERBITUX [Concomitant]
     Dosage: 11-OCT-2011
     Route: 041
  8. ERBITUX [Concomitant]
     Dosage: 25-OCT-2011
     Route: 041
  9. NACL .9% [Concomitant]
     Route: 065
     Dates: start: 20110712
  10. MAGNESIUM SULPHATE [Concomitant]

REACTIONS (3)
  - Death [Fatal]
  - Rash erythematous [Unknown]
  - Device malfunction [Unknown]
